FAERS Safety Report 4787069-X (Version None)
Quarter: 2005Q4

REPORT INFORMATION
  Report Type: 
  Country: None (occurrence: None)
  Receive Date: 20051004
  Receipt Date: 20041227
  Transmission Date: 20060501
  Serious: Yes (Other)
  Sender: FDA-Public Use
  Company Number: 2004UW26165

PATIENT
  Age: 85 Year
  Sex: Female
  Weight: 51.3 kg

DRUGS (5)
  1. TOPROL-XL [Suspect]
     Indication: HYPERTENSION
     Route: 048
  2. TOPROL-XL [Suspect]
     Route: 048
     Dates: start: 20040721
  3. HYDROCHLOROTHIAZIDE [Concomitant]
     Dates: end: 20040721
  4. SYNTHROID [Concomitant]
  5. XALATAN [Concomitant]

REACTIONS (4)
  - BLOOD CREATININE INCREASED [None]
  - CEREBROVASCULAR ACCIDENT [None]
  - DYSPNOEA [None]
  - OEDEMA PERIPHERAL [None]
